FAERS Safety Report 7293268-8 (Version None)
Quarter: 2011Q1

REPORT INFORMATION
  Report Type: 
  Country: None (occurrence: None)
  Receive Date: 20110210
  Receipt Date: 20110210
  Transmission Date: 20110831
  Serious: Yes (Other)
  Sender: FDA-Public Use
  Company Number: None

PATIENT
  Age: 34 Year
  Sex: Female
  Weight: 72.5755 kg

DRUGS (1)
  1. TYLENOL SINUS CONGESTION + PAIN DAYTIME NCNEIL [Suspect]
     Indication: INFLUENZA
     Dosage: 2 CAPLETS ONCE PO
     Route: 048
     Dates: start: 20110206, end: 20110206

REACTIONS (2)
  - PRURITUS GENERALISED [None]
  - URTICARIA [None]
